FAERS Safety Report 5795960-0 (Version None)
Quarter: 2008Q3

REPORT INFORMATION
  Report Type: 
  Country: None (occurrence: None)
  Receive Date: 20080701
  Receipt Date: 20080624
  Transmission Date: 20090109
  Serious: Yes (Life-Threatening)
  Sender: FDA-Public Use
  Company Number: FR-JNJFOC-20080605611

PATIENT
  Sex: Female

DRUGS (5)
  1. HALDOL [Suspect]
     Indication: PSYCHOTIC DISORDER
     Route: 048
  2. COAPROVEL [Suspect]
     Indication: HYPERTENSION
     Route: 048
  3. LOGIMAX [Suspect]
     Indication: HYPERTENSION
     Route: 048
  4. LIPANOR [Suspect]
     Indication: DYSLIPIDAEMIA
     Route: 048
  5. TERCIAN [Suspect]
     Indication: PSYCHOTIC DISORDER
     Route: 048

REACTIONS (6)
  - ELECTROCARDIOGRAM QT PROLONGED [None]
  - HYPOKALAEMIA [None]
  - HYPOTHERMIA [None]
  - MALAISE [None]
  - RENAL FAILURE ACUTE [None]
  - RHABDOMYOLYSIS [None]
